FAERS Safety Report 5335859-7 (Version None)
Quarter: 2007Q2

REPORT INFORMATION
  Report Type: 
  Country: None (occurrence: None)
  Receive Date: 20070301
  Receipt Date: 20060714
  Transmission Date: 20071010
  Serious: Yes (Other)
  Sender: FDA-Public Use
  Company Number: 227421

PATIENT
  Sex: Male

DRUGS (2)
  1. NUTROPIN [Suspect]
     Indication: DRUG USE FOR UNKNOWN INDICATION
  2. PREDNISONE TAB [Concomitant]

REACTIONS (1)
  - BLOOD GLUCOSE INCREASED [None]
